FAERS Safety Report 16601605 (Version 1)
Quarter: 2019Q3

REPORT INFORMATION
  Report Type: Spontaneous
  Country: DE (occurrence: DE)
  Receive Date: 20190719
  Receipt Date: 20190719
  Transmission Date: 20191004
  Serious: Yes (Hospitalization)
  Sender: FDA-Public Use
  Company Number: DE-TEVA-2019-DE-1079223

PATIENT
  Age: 89 Year
  Sex: Female

DRUGS (11)
  1. PREDNISOLON [Suspect]
     Active Substance: PREDNISOLONE
     Dosage: 10 MG, 0.25-0-0-0
     Route: 065
  2. PRAMIPEXOL [Concomitant]
     Active Substance: PRAMIPEXOLE
     Dosage: 0.18 MG, 1-0-1-0
  3. IBUPROFEN. [Concomitant]
     Active Substance: IBUPROFEN
     Dosage: 600 MG, IF NECESSARY 1-0-1-0
  4. AMLODIPIN [Concomitant]
     Active Substance: AMLODIPINE BESYLATE
     Dosage: 5 MG, 1-0-1-0
  5. BISOPROLOL [Concomitant]
     Active Substance: BISOPROLOL
     Dosage: 10 MG, 0.5-0-0.5-0
  6. RAMIPRIL. [Concomitant]
     Active Substance: RAMIPRIL
     Dosage: 5 MG, 1-0-1-0
  7. BERODUAL N [Concomitant]
     Active Substance: FENOTEROL HYDROBROMIDE\IPRATROPIUM BROMIDE
     Dosage: 50 | 21 MICROGRAM, 2 STROKE IF REQUIRED
     Route: 055
  8. APIXABAN [Suspect]
     Active Substance: APIXABAN
     Dosage: 2.5 MG, 1-0-1-0
  9. LEVODOPA/BENSERAZID [Concomitant]
     Active Substance: BENSERAZIDE\LEVODOPA
     Dosage: 100|25 MG, 0.5-0-0.5-0
  10. METAMIZOL [Concomitant]
     Active Substance: METAMIZOLE SODIUM
     Dosage: NK MG, IF NECESSARY 25-25-25, DROPS
  11. ACLIDINIUM BROMIDE. [Concomitant]
     Active Substance: ACLIDINIUM BROMIDE
     Dosage: 40 MICROGRAM, 1-0-1-0

REACTIONS (2)
  - Anaemia [Unknown]
  - Dyspnoea [Unknown]
